FAERS Safety Report 8158551-2 (Version None)
Quarter: 2012Q1

REPORT INFORMATION
  Report Type: 
  Country: None (occurrence: None)
  Receive Date: 20120213
  Receipt Date: 20120206
  Transmission Date: 20120608
  Serious: Yes (Hospitalization)
  Sender: FDA-Public Use
  Company Number: 2012031028

PATIENT
  Age: 85 Year
  Sex: Male

DRUGS (8)
  1. ALLOPURINOL [Concomitant]
  2. AVELOX [Concomitant]
  3. RAMIPRIL [Concomitant]
  4. PANTOPRAZOLE SODIUM [Concomitant]
  5. PRIVIGEN [Suspect]
     Indication: IMMUNODEFICIENCY
     Dosage: 10 G QD INTRAVENOUS (NOT OTHERWISE SPECIFIED)
     Route: 042
     Dates: start: 20110211, end: 20110215
  6. PRIVIGEN [Suspect]
     Indication: B-CELL LYMPHOMA
     Dosage: 10 G QD INTRAVENOUS (NOT OTHERWISE SPECIFIED)
     Route: 042
     Dates: start: 20110211, end: 20110215
  7. GLIMEPIRIDE [Concomitant]
  8. CALCIUM CARBONATE [Concomitant]

REACTIONS (4)
  - HYPERTENSIVE CRISIS [None]
  - MALAISE [None]
  - TACHYCARDIA [None]
  - PNEUMONIA [None]
